FAERS Safety Report 13184333 (Version 4)
Quarter: 2017Q3

REPORT INFORMATION
  Report Type: Report from Study
  Country: JP (occurrence: JP)
  Receive Date: 20170203
  Receipt Date: 20170807
  Transmission Date: 20171127
  Serious: Yes (Other)
  Sender: FDA-Public Use
  Company Number: JP-BRISTOL-MYERS SQUIBB COMPANY-BMS-2017-008282

PATIENT
  Age: 68 Year
  Sex: Male

DRUGS (1)
  1. NIVOLUMAB [Suspect]
     Active Substance: NIVOLUMAB
     Indication: RENAL CELL CARCINOMA
     Dosage: 3 MG/KG, UNK
     Route: 041
     Dates: start: 20161028, end: 20170209

REACTIONS (4)
  - Condition aggravated [Recovered/Resolved]
  - Lipoma excision [Unknown]
  - Malignant neoplasm progression [Unknown]
  - Lipoma [Recovered/Resolved]

NARRATIVE: CASE EVENT DATE: 20170126
